FAERS Safety Report 7684337-9 (Version None)
Quarter: 2011Q3

REPORT INFORMATION
  Report Type: 
  Country: None (occurrence: None)
  Receive Date: 20110815
  Receipt Date: 20110810
  Transmission Date: 20111222
  Serious: No
  Sender: FDA-Public Use
  Company Number: US-B.I. PHARMACEUTICALS,INC./RIDGEFIELD-2011-BP-19762BP

PATIENT
  Age: 62 Year
  Sex: Female

DRUGS (10)
  1. GLIPIZIDE [Concomitant]
     Indication: DIABETES MELLITUS
     Route: 048
  2. RAMIPRIL [Concomitant]
     Indication: HYPERTENSION
     Route: 048
  3. LIPITOR [Concomitant]
     Indication: BLOOD CHOLESTEROL INCREASED
     Route: 048
  4. COMBIVENT [Suspect]
     Indication: CHRONIC OBSTRUCTIVE PULMONARY DISEASE
     Route: 055
     Dates: start: 20110725
  5. LANTUS [Concomitant]
     Indication: DIABETES MELLITUS
     Route: 058
  6. COMBIVENT [Suspect]
     Route: 047
     Dates: start: 20110809
  7. METFORMIN HCL [Concomitant]
     Indication: DIABETES MELLITUS
     Route: 048
  8. JANUVIA [Concomitant]
     Indication: DIABETES MELLITUS
     Route: 048
  9. LASIX [Concomitant]
     Indication: HYPERTENSION
     Route: 048
  10. ASPIRIN [Concomitant]
     Indication: PROPHYLAXIS
     Route: 048

REACTIONS (3)
  - EYELID PAIN [None]
  - CONJUNCTIVITIS [None]
  - INTRAOCULAR PRESSURE INCREASED [None]
